FAERS Safety Report 26074389 (Version 3)
Quarter: 2025Q4

REPORT INFORMATION
  Report Type: Report from Study
  Country: US (occurrence: US)
  Receive Date: 20251121
  Receipt Date: 20251205
  Transmission Date: 20260118
  Serious: Yes (Other)
  Sender: ABBVIE
  Company Number: US-ABBVIE-6556008

PATIENT
  Age: 64 Year
  Sex: Female

DRUGS (3)
  1. UBRELVY [Suspect]
     Active Substance: UBROGEPANT
     Indication: Migraine
     Dosage: LAST ADMINISTRATION (TEXT): DISCONTINUED
     Route: 048
     Dates: start: 20251107, end: 20251129
  2. UBRELVY [Suspect]
     Active Substance: UBROGEPANT
     Indication: Migraine
     Dosage: LAST ADMINISTRATION (TEXT): ONGOING
     Route: 048
     Dates: start: 20251130
  3. UBRELVY [Suspect]
     Active Substance: UBROGEPANT
     Indication: Migraine
     Route: 048

REACTIONS (8)
  - Multiple sclerosis [Not Recovered/Not Resolved]
  - Loss of consciousness [Recovering/Resolving]
  - Migraine [Not Recovered/Not Resolved]
  - Hypotension [Unknown]
  - Dehydration [Recovering/Resolving]
  - Seizure [Recovering/Resolving]
  - Erythema [Unknown]
  - Loss of personal independence in daily activities [Recovering/Resolving]

NARRATIVE: CASE EVENT DATE: 20250101
